FAERS Safety Report 8157603-0 (Version None)
Quarter: 2012Q1

REPORT INFORMATION
  Report Type: 
  Country: None (occurrence: None)
  Receive Date: 20120222
  Receipt Date: 20110906
  Transmission Date: 20120608
  Serious: No
  Sender: FDA-Public Use
  Company Number: US-ASTRAZENECA-2011SE53375

PATIENT
  Sex: Female

DRUGS (1)
  1. TENORMIN [Suspect]
     Route: 065

REACTIONS (1)
  - MULTIPLE ALLERGIES [None]
